FAERS Safety Report 9559340 (Version 2)
Quarter: 2014Q1

REPORT INFORMATION
  Report Type: Spontaneous
  Country: US (occurrence: None)
  Receive Date: 20130906
  Receipt Date: 20131205
  Transmission Date: 20141002
  Serious: Yes (Other)
  Sender: FDA-Public Use
  Company Number: 163-POMAL-13081053

PATIENT
  Age: 77 Year
  Sex: Female

DRUGS (2)
  1. POMALYST (POMALIDOMIDE) (4 MILLIGRAM, CAPSULES) [Suspect]
     Indication: PLASMA CELL MYELOMA
     Dosage: 4 MG, 21 IN 28 D, PO
     Route: 048
     Dates: start: 201304
  2. DEXAMETHASONE (DEXAMETHASONE) (UNKNOWN) [Suspect]
     Indication: PRODUCT USED FOR UNKNOWN INDICATION

REACTIONS (11)
  - Disturbance in attention [None]
  - Fall [None]
  - Nausea [None]
  - Vomiting [None]
  - Anaemia [None]
  - Dizziness [None]
  - Feeling jittery [None]
  - Mass [None]
  - Fatigue [None]
  - Dyspnoea [None]
  - Blood immunoglobulin A increased [None]
